FAERS Safety Report 15123352 (Version 3)
Quarter: 2018Q3

REPORT INFORMATION
  Report Type: Spontaneous
  Country: NO (occurrence: NO)
  Receive Date: 20180706
  Receipt Date: 20180806
  Transmission Date: 20181010
  Serious: Yes (Death, Other)
  Sender: FDA-Public Use
  Company Number: NO-CONCORDIA PHARMACEUTICALS INC.-E2B_00013311

PATIENT
  Age: 25 Year
  Sex: Female

DRUGS (16)
  1. CYTARABINE. [Suspect]
     Active Substance: CYTARABINE
     Dosage: GIVEN ACCORDING TO NOPHO PROTOCOL, ONE TIME WEEKLY
     Route: 037
     Dates: start: 20160919, end: 20161115
  2. METEX (METHOTREXATE SODIUM) [Suspect]
     Active Substance: METHOTREXATE SODIUM
     Indication: ACUTE LYMPHOCYTIC LEUKAEMIA
     Dosage: GIVEN ACCORDING TO NOPHO PROTOCOL, INITIALLY TWO TIMES PER WEEK
     Dates: start: 20160628, end: 2016
  3. METHOTREXATE SODIUM. [Suspect]
     Active Substance: METHOTREXATE SODIUM
     Indication: LEUKOCYTOSIS
     Dosage: INITIALLY UNTIL SPINAL FLUID IS BLANK
     Route: 037
     Dates: start: 20160628, end: 20160918
  4. PREDNISOLONE. [Suspect]
     Active Substance: PREDNISOLONE
     Dosage: GIVEN ACCORDING TO NOPHO PROTOCOL, ONE TIME WEEKLY
     Route: 037
     Dates: start: 20160919, end: 20161115
  5. METHOTREXATE SODIUM. [Suspect]
     Active Substance: METHOTREXATE SODIUM
     Dosage: 1 DF, WEEKLY
     Route: 037
     Dates: start: 20160919, end: 20161115
  6. METHOTREXATE SODIUM. [Suspect]
     Active Substance: METHOTREXATE SODIUM
     Dosage: 2 DF, WEEKLY: INITIALLY UNTIL SPINAL FLUID IS BLANK
     Route: 037
     Dates: start: 20160628, end: 20160918
  7. PREDNISOLONE. [Suspect]
     Active Substance: PREDNISOLONE
     Indication: LEUKOCYTOSIS
     Dosage: 2 DF, WEEKLY; INITIALLY UNTIL SPINAL FLUID IS BLANK
     Route: 037
     Dates: start: 20160628, end: 201609
  8. CYTARABINE. [Suspect]
     Active Substance: CYTARABINE
     Indication: ACUTE LYMPHOCYTIC LEUKAEMIA
     Dosage: 1 DF, WEEKLY
     Route: 037
     Dates: start: 20160919, end: 20161115
  9. METHOTREXATE SODIUM. [Suspect]
     Active Substance: METHOTREXATE SODIUM
     Indication: ACUTE LYMPHOCYTIC LEUKAEMIA
     Route: 037
     Dates: start: 20160919, end: 20161115
  10. PREDNISOLONE. [Suspect]
     Active Substance: PREDNISOLONE
     Indication: ACUTE LYMPHOCYTIC LEUKAEMIA
     Dosage: 1 DF, WEEKLY
     Route: 037
     Dates: start: 20160919, end: 20161115
  11. PREDNISOLONE. [Suspect]
     Active Substance: PREDNISOLONE
     Indication: ACUTE LYMPHOCYTIC LEUKAEMIA
     Dosage: GIVEN ACCORDING TO NOPHO PROTOCOL, INITIALLY TWO TIMES PER WEEK
     Route: 037
     Dates: start: 20160628, end: 2016
  12. CYTARABINE. [Suspect]
     Active Substance: CYTARABINE
     Indication: LEUKOCYTOSIS
     Dosage: 2 DF, WEEKLY; INITIALLY UNTIL SPINAL FLUID IS BLANK
     Route: 037
     Dates: start: 20160628, end: 2016
  13. CYTARABINE. [Suspect]
     Active Substance: CYTARABINE
     Indication: ACUTE LYMPHOCYTIC LEUKAEMIA
     Dosage: 2 DF, WEEKLY; INITIALLY UNTIL SPINAL FLUID IS BLANK
     Route: 037
     Dates: start: 20160628, end: 201609
  14. CYTARABINE. [Suspect]
     Active Substance: CYTARABINE
     Dosage: INITIALLY UNTIL SPINAL FLUID IS BLANK
     Route: 037
     Dates: start: 20160628, end: 201609
  15. PREDNISOLONE. [Suspect]
     Active Substance: PREDNISOLONE
     Dosage: INITIALLY UNTIL SPINAL FLUID IS BLANK
     Route: 037
     Dates: start: 20160628, end: 201609
  16. METEX (METHOTREXATE SODIUM) [Suspect]
     Active Substance: METHOTREXATE SODIUM
     Dosage: GIVEN ACCORDING TO NOPHO PROTOCOL, ONE TIME WEEKLY
     Route: 037
     Dates: start: 20160919, end: 20161115

REACTIONS (10)
  - Myelopathy [Fatal]
  - Motor dysfunction [Not Recovered/Not Resolved]
  - Neurogenic bladder [Not Recovered/Not Resolved]
  - Myelomalacia [Not Recovered/Not Resolved]
  - Toxicity to various agents [Not Recovered/Not Resolved]
  - Leukaemia recurrent [Fatal]
  - Anal sphincter atony [Not Recovered/Not Resolved]
  - Myelopathy [Unknown]
  - Leukoencephalopathy [Fatal]
  - Paraplegia [Not Recovered/Not Resolved]

NARRATIVE: CASE EVENT DATE: 201608
